FAERS Safety Report 5065763-3 (Version None)
Quarter: 2006Q3

REPORT INFORMATION
  Report Type: 
  Country: None (occurrence: None)
  Receive Date: 20060731
  Receipt Date: 20060719
  Transmission Date: 20061208
  Serious: Yes (Other)
  Sender: FDA-Public Use
  Company Number: US-ROCHE-456419

PATIENT
  Age: 56 Year
  Sex: Female
  Weight: 65.3 kg

DRUGS (7)
  1. PEGASYS [Suspect]
     Indication: HEPATITIS C
     Dosage: STRENGTH REPORTED AS 180MCG/ 0.5ML.
     Route: 058
     Dates: start: 20050922, end: 20060124
  2. PEGASYS [Suspect]
     Dosage: STRENGTH REPORTED AS 180MCG/ 0.5ML.
     Route: 058
     Dates: start: 20060704
  3. RIBAVIRIN [Suspect]
     Indication: HEPATITIS C
     Route: 048
     Dates: start: 20050922, end: 20060124
  4. RIBAVIRIN [Suspect]
     Route: 048
     Dates: start: 20060704
  5. BENTYL [Concomitant]
     Indication: GASTRIC DISORDER
     Route: 048
  6. MAXALT [Concomitant]
  7. METAMUCIL [Concomitant]
     Indication: CONSTIPATION

REACTIONS (7)
  - ABDOMINAL PAIN [None]
  - CRYING [None]
  - MALAISE [None]
  - MENORRHAGIA [None]
  - MENSTRUAL DISORDER [None]
  - MIGRAINE [None]
  - MUSCLE SPASMS [None]
